FAERS Safety Report 13863693 (Version 4)
Quarter: 2018Q4

REPORT INFORMATION
  Report Type: Report from Study
  Country: GR (occurrence: GR)
  Receive Date: 20170814
  Receipt Date: 20181219
  Transmission Date: 20190204
  Serious: Yes (Other)
  Sender: FDA-Public Use
  Company Number: PHHY2017GR117489

PATIENT
  Sex: Male

DRUGS (1)
  1. TASIGNA [Suspect]
     Active Substance: NILOTINIB
     Indication: CHRONIC MYELOID LEUKAEMIA
     Dosage: 600 MG, UNK
     Route: 048
     Dates: start: 20130411

REACTIONS (2)
  - Abdominal pain upper [Recovered/Resolved]
  - Duodenal ulcer [Recovered/Resolved]

NARRATIVE: CASE EVENT DATE: 201507
